FAERS Safety Report 5897145-6 (Version None)
Quarter: 2008Q3

REPORT INFORMATION
  Report Type: 
  Country: None (occurrence: None)
  Receive Date: 20080924
  Receipt Date: 20080428
  Transmission Date: 20090109
  Serious: Yes (Life-Threatening)
  Sender: FDA-Public Use
  Company Number: US-ASTRAZENECA-2008UW08776

PATIENT
  Age: 36 Year
  Sex: Male

DRUGS (5)
  1. SEROQUEL [Suspect]
     Route: 048
  2. DEPAKOTE [Suspect]
  3. REMERON [Suspect]
  4. AMBIEN [Suspect]
  5. ABILIFY [Concomitant]

REACTIONS (1)
  - BLOOD GLUCOSE INCREASED [None]
